FAERS Safety Report 21885476 (Version 1)
Quarter: 2023Q1

REPORT INFORMATION
  Report Type: Spontaneous
  Country: US (occurrence: US)
  Receive Date: 20230119
  Receipt Date: 20230119
  Transmission Date: 20230417
  Serious: No
  Sender: FDA-Public Use
  Company Number: US-MYLANLABS-2023M1000082

PATIENT
  Age: 52 Year
  Sex: Male
  Weight: 100.24 kg

DRUGS (15)
  1. GABAPENTIN [Suspect]
     Active Substance: GABAPENTIN
     Indication: Neuropathy peripheral
     Dosage: 300 MILLIGRAM, HS, (ONE CAPSULE AT BED TIME )
     Route: 065
  2. COVID-19 VACCINE NOS [Suspect]
     Active Substance: COVID-19 VACCINE NOS
     Indication: Product used for unknown indication
     Dosage: UNK, (FIRST DOSE)
     Route: 065
     Dates: start: 20210601
  3. COVID-19 VACCINE NOS [Suspect]
     Active Substance: COVID-19 VACCINE NOS
     Dosage: UNK, (SECOND DOSE)
     Route: 065
     Dates: start: 20210624
  4. PAXLOVID [Suspect]
     Active Substance: NIRMATRELVIR\RITONAVIR
     Indication: Product used for unknown indication
     Dosage: UNK
     Route: 065
  5. EZETIMIBE [Concomitant]
     Active Substance: EZETIMIBE
     Indication: Blood cholesterol
     Dosage: 10 MILLIGRAM, HS, (AT BEDTIME MEDICATION FOR 2 YEARS, BUT MAYBE LONGER)
     Route: 065
  6. ASPIRIN [Concomitant]
     Active Substance: ASPIRIN
     Indication: Cardiac disorder
     Dosage: 81 MILLIGRAM, QD, (ONCE A DAY SINCE 2017-2018)
     Route: 065
  7. LISINOPRIL [Concomitant]
     Active Substance: LISINOPRIL
     Indication: Blood pressure measurement
     Dosage: 10 MILLIGRAM, QD, (ONCE A DAY AT LEAST, MAYBE 6 YEARS)
     Route: 065
  8. NITROGLYCERIN [Concomitant]
     Active Substance: NITROGLYCERIN
     Indication: Cardiac disorder
     Dosage: 0.4 MILLIGRAM, (TAKE ONE TABLET, WAIT 5 MINUTES, THEN TAKE ANOTHER)
     Route: 065
     Dates: start: 2016
  9. BREO ELLIPTA [Concomitant]
     Active Substance: FLUTICASONE FUROATE\VILANTEROL TRIFENATATE
     Indication: Asthma
     Dosage: UNK, (100MCG/25MCG ONE PUFF IN THE MORNING SINCE 2017 OR 2018)
     Route: 065
  10. INCRUSE ELLIPTA [Concomitant]
     Active Substance: UMECLIDINIUM BROMIDE
     Indication: Asthma
     Dosage: UNK, (62.5MCG ONE PUFF IN THE MORNING)
     Route: 065
  11. PROAIR HFA [Concomitant]
     Active Substance: ALBUTEROL SULFATE
     Indication: Asthma
     Dosage: UNK, (90MCG 1-2 PUFFS EVERY 6 HOURS)
     Route: 065
  12. FLONASE [Concomitant]
     Active Substance: FLUTICASONE PROPIONATE
     Indication: Hypersensitivity
     Dosage: UNK, (ONE SPRAY IN EACH SIDE, NOSTRILS)
     Route: 045
  13. ESOMEPRAZOLE [Concomitant]
     Active Substance: ESOMEPRAZOLE
     Indication: Dyspepsia
     Dosage: 40 MILLIGRAM, QD, (ONCE A DAY FOR PROBABLY 2-3 YEARS)
     Route: 065
  14. FLUOXETINE HYDROCHLORIDE [Concomitant]
     Active Substance: FLUOXETINE HYDROCHLORIDE
     Indication: Depression
     Dosage: 20 MILLIGRAM, QD, (ONCE A DAY MEDICATION FOR A YEAR OR CLOSE TO A YEAR)
     Route: 065
  15. BRILINTA [Concomitant]
     Active Substance: TICAGRELOR
     Dosage: UNK, (PATIENT WAS ALLERGIC TO MEDICINE DISCOVERED IN 2016)
     Route: 065

REACTIONS (1)
  - COVID-19 [Unknown]

NARRATIVE: CASE EVENT DATE: 20221107
